FAERS Safety Report 9094142 (Version 1)
Quarter: 2013Q1

REPORT INFORMATION
  Report Type: Spontaneous
  Country: US (occurrence: None)
  Receive Date: 20130214
  Receipt Date: 20130214
  Transmission Date: 20140127
  Serious: Yes (Hospitalization)
  Sender: FDA-Public Use
  Company Number: None

PATIENT
  Age: 81 Year
  Sex: Male
  Weight: 55 kg

DRUGS (1)
  1. WARFARIN [Suspect]
     Indication: ATRIAL FIBRILLATION
     Dosage: AS DIRTECTED MG; PO
     Route: 048
     Dates: start: 20121228, end: 20130102

REACTIONS (9)
  - International normalised ratio increased [None]
  - Haemoglobin decreased [None]
  - Haematocrit increased [None]
  - Asthenia [None]
  - Decreased appetite [None]
  - Gastritis [None]
  - Intestinal polyp haemorrhage [None]
  - Blood urea increased [None]
  - Blood creatinine increased [None]
